FAERS Safety Report 10036706 (Version 1)
Quarter: 2014Q1

REPORT INFORMATION
  Report Type: Other
  Country: GB (occurrence: GB)
  Receive Date: 20140326
  Receipt Date: 20140326
  Transmission Date: 20141002
  Serious: Yes (Hospitalization, Other)
  Sender: FDA-Public Use
  Company Number: GB-SUN PHARMACEUTICAL INDUSTRIES LTD-2014SUN00608

PATIENT
  Sex: Female

DRUGS (6)
  1. CARBOPLATIN 10 MG/ML CONCENTRATE FOR SOLUTION FOR INFUSION [Suspect]
     Indication: NEOPLASM MALIGNANT
     Dosage: UNK
     Dates: start: 20130830
  2. GEMCITABINE INJECTION [Suspect]
     Indication: NEOPLASM MALIGNANT
     Dosage: UNK
     Dates: start: 20130830
  3. DOCETAXEL [Suspect]
     Indication: NEOPLASM MALIGNANT
     Dosage: 3 CYCLES
     Dates: start: 20130429, end: 201305
  4. DENOSUMAB [Suspect]
     Indication: NEOPLASM MALIGNANT
     Dates: start: 20130830
  5. EPIRUBICIN [Suspect]
     Indication: NEOPLASM MALIGNANT
     Dosage: 3 CYCLES
     Dates: start: 20130225, end: 20130408
  6. CYCLOPHOSPHAMIDE [Suspect]
     Indication: NEOPLASM MALIGNANT
     Dosage: 3 CYCLES
     Dates: start: 20130225, end: 20130408

REACTIONS (7)
  - Vitamin D deficiency [Unknown]
  - Gastrointestinal haemorrhage [Unknown]
  - Hyperparathyroidism [Unknown]
  - Pleural effusion [Unknown]
  - Hypocalcaemia [Unknown]
  - Renal failure acute [Unknown]
  - Diarrhoea [Unknown]
